FAERS Safety Report 24814331 (Version 1)
Quarter: 2025Q1

REPORT INFORMATION
  Report Type: Spontaneous
  Country: US (occurrence: US)
  Receive Date: 20250107
  Receipt Date: 20250107
  Transmission Date: 20250409
  Serious: Yes (Other)
  Sender: TEVA
  Company Number: US-TEVA-VS-3239429

PATIENT
  Age: 21 Year
  Sex: Male
  Weight: 73 kg

DRUGS (14)
  1. MODAFINIL [Suspect]
     Active Substance: MODAFINIL
     Indication: Product used for unknown indication
     Route: 065
  2. LUMRYZ [Suspect]
     Active Substance: SODIUM OXYBATE
     Indication: Narcolepsy
     Dosage: EXTENDED-RELEASE ORAL SUSPENSION, ONCE NIGHTLY AT BEDTIME
     Route: 048
     Dates: start: 20231208, end: 20231214
  3. LUMRYZ [Suspect]
     Active Substance: SODIUM OXYBATE
     Indication: Narcolepsy
     Dosage: EXTENDED-RELEASE ORAL SUSPENSION, ONCE NIGHTLY AT BEDTIME
     Route: 048
     Dates: start: 20231215, end: 20231228
  4. LUMRYZ [Suspect]
     Active Substance: SODIUM OXYBATE
     Indication: Narcolepsy
     Dosage: EXTENDED-RELEASE ORAL SUSPENSION, ONCE NIGHTLY AT BEDTIME
     Route: 048
     Dates: start: 2024, end: 2024
  5. LUMRYZ [Suspect]
     Active Substance: SODIUM OXYBATE
     Indication: Narcolepsy
     Dosage: EXTENDED-RELEASE ORAL SUSPENSION, ONCE NIGHTLY AT BEDTIME
     Route: 048
     Dates: start: 2024, end: 2024
  6. LUMRYZ [Suspect]
     Active Substance: SODIUM OXYBATE
     Indication: Narcolepsy
     Dosage: EXTENDED-RELEASE ORAL SUSPENSION, ONCE NIGHTLY AT BEDTIME
     Route: 048
     Dates: start: 2024, end: 2024
  7. VITAMIN D3 [Concomitant]
     Active Substance: CHOLECALCIFEROL
     Indication: Product used for unknown indication
  8. GONADORELIN HCL [Concomitant]
     Indication: Product used for unknown indication
  9. TESTOSTERONE CYPIONATE [Concomitant]
     Active Substance: TESTOSTERONE CYPIONATE
     Indication: Product used for unknown indication
  10. EPIPEN [Concomitant]
     Active Substance: EPINEPHRINE
     Indication: Product used for unknown indication
  11. NASACORT [Concomitant]
     Active Substance: TRIAMCINOLONE ACETONIDE
     Indication: Product used for unknown indication
  12. ZYRTEC [Concomitant]
     Active Substance: CETIRIZINE HYDROCHLORIDE
     Indication: Product used for unknown indication
  13. ASTEPRO [Concomitant]
     Active Substance: AZELASTINE HYDROCHLORIDE
     Indication: Product used for unknown indication
  14. VITAMINS [Suspect]
     Active Substance: VITAMINS
     Indication: Product used for unknown indication
     Route: 065

REACTIONS (35)
  - Delirium [Not Recovered/Not Resolved]
  - Vitreous floaters [Not Recovered/Not Resolved]
  - Gastrointestinal disorder [Unknown]
  - Time perception altered [Unknown]
  - Constipation [Not Recovered/Not Resolved]
  - Hangover [Unknown]
  - Metabolic disorder [Not Recovered/Not Resolved]
  - Weight decreased [Unknown]
  - Mania [Unknown]
  - Abdominal discomfort [Not Recovered/Not Resolved]
  - Food allergy [Unknown]
  - Blood potassium decreased [Not Recovered/Not Resolved]
  - Gastroenteritis viral [Unknown]
  - Dehydration [Not Recovered/Not Resolved]
  - Night sweats [Recovering/Resolving]
  - Skin odour abnormal [Not Recovered/Not Resolved]
  - Thirst [Unknown]
  - Feeling hot [Unknown]
  - Initial insomnia [Unknown]
  - Poor quality sleep [Not Recovered/Not Resolved]
  - Feeling cold [Unknown]
  - Feeling abnormal [Not Recovered/Not Resolved]
  - Brain fog [Not Recovered/Not Resolved]
  - Hypocalcaemia [Unknown]
  - Gastrointestinal pain [Unknown]
  - Mood altered [Unknown]
  - Cognitive disorder [Unknown]
  - Hypovolaemia [Unknown]
  - Therapeutic procedure [Unknown]
  - Photopsia [Recovered/Resolved]
  - Nausea [Not Recovered/Not Resolved]
  - Decreased appetite [Recovering/Resolving]
  - Blood pressure increased [Unknown]
  - Somnolence [Unknown]
  - Dizziness [Unknown]

NARRATIVE: CASE EVENT DATE: 20231201
